FAERS Safety Report 12916638 (Version 1)
Quarter: 2016Q4

REPORT INFORMATION
  Report Type: Spontaneous
  Country: JP (occurrence: JP)
  Receive Date: 20161107
  Receipt Date: 20161107
  Transmission Date: 20170207
  Serious: Yes (Death, Other)
  Sender: FDA-Public Use
  Company Number: JP-ACCORD-045370

PATIENT
  Age: 36 Year
  Sex: Female

DRUGS (3)
  1. TACROLIMUS. [Suspect]
     Active Substance: TACROLIMUS
     Indication: LUNG TRANSPLANT
     Dosage: INCREASED DOSE OF IMMUNOSUPPRESSANTS
  2. PREDNISOLONE. [Suspect]
     Active Substance: PREDNISOLONE
     Indication: LUNG TRANSPLANT
     Dosage: INCREASED DOSE OF IMMUNOSUPPRESSANTS
  3. MYCOPHENOLIC ACID. [Suspect]
     Active Substance: MYCOPHENOLIC ACID
     Indication: LUNG TRANSPLANT
     Dosage: INCREASED DOSE OF IMMUNOSUPPRESSANTS

REACTIONS (5)
  - Alveolar proteinosis [Fatal]
  - Respiratory failure [Fatal]
  - Obliterative bronchiolitis [Fatal]
  - Disease recurrence [Fatal]
  - Bronchopulmonary aspergillosis [Not Recovered/Not Resolved]
